FAERS Safety Report 6284096-0 (Version None)
Quarter: 2009Q3

REPORT INFORMATION
  Report Type: 
  Country: None (occurrence: None)
  Receive Date: 20090723
  Receipt Date: 20090715
  Transmission Date: 20100115
  Serious: Yes (Hospitalization)
  Sender: FDA-Public Use
  Company Number: 2008AL012005

PATIENT
  Age: 61 Year
  Sex: Female

DRUGS (16)
  1. DIGOXIN [Suspect]
     Dosage: 0.125MG, DAILY, PO
     Route: 048
     Dates: start: 19970101, end: 20090618
  2. PRAVASTATIN SODIUM [Concomitant]
  3. HYDROCODONE [Concomitant]
  4. GLYBURIDE [Concomitant]
  5. ALLOPURINOL [Concomitant]
  6. CEFDINIR [Concomitant]
  7. HYDROCHLOROTHIAZIDE [Concomitant]
  8. ACTOS [Concomitant]
  9. FACTIVE [Concomitant]
  10. PLAVIX [Concomitant]
  11. CELEBREX [Concomitant]
  12. METHYLPREDNISOLONE [Concomitant]
  13. CELECOXIB [Concomitant]
  14. TOBRAMYCIN [Concomitant]
  15. CLOPIDOGREL [Concomitant]
  16. PIOGLITAZONE [Concomitant]

REACTIONS (11)
  - BASAL CELL CARCINOMA [None]
  - DIASTOLIC DYSFUNCTION [None]
  - DYSPNOEA [None]
  - ECONOMIC PROBLEM [None]
  - HEART RATE DECREASED [None]
  - HEART RATE IRREGULAR [None]
  - HYPOTENSION [None]
  - LEFT VENTRICULAR HYPERTROPHY [None]
  - MULTIPLE INJURIES [None]
  - SICK SINUS SYNDROME [None]
  - VISUAL FIELD DEFECT [None]
